FAERS Safety Report 5764061-X (Version None)
Quarter: 2008Q2

REPORT INFORMATION
  Report Type: 
  Country: None (occurrence: None)
  Receive Date: 20080606
  Receipt Date: 20080606
  Transmission Date: 20081010
  Serious: Yes (Life-Threatening, Hospitalization, Disabling)
  Sender: FDA-Public Use
  Company Number: None

PATIENT
  Sex: Female
  Weight: 53.5244 kg

DRUGS (1)
  1. DIGITEK .125 MG - MYLAN BERTEK PHARMACY [Suspect]
     Indication: ARRHYTHMIA
     Dosage: .125 MG 1-A-DAY PART OF 2006 ALL OF 2007-2008 TO MAY 2
     Dates: start: 20060101, end: 20080502

REACTIONS (7)
  - CHEST PAIN [None]
  - DIZZINESS [None]
  - FALL [None]
  - INFECTION [None]
  - RENAL FAILURE [None]
  - URINARY TRACT INFECTION [None]
  - VISION BLURRED [None]
